FAERS Safety Report 9465629 (Version 3)
Quarter: 2013Q4

REPORT INFORMATION
  Report Type: Report from Study
  Country: CA (occurrence: CA)
  Receive Date: 20130820
  Receipt Date: 20131009
  Transmission Date: 20140711
  Serious: Yes (Death, Hospitalization, Other)
  Sender: FDA-Public Use
  Company Number: PHHY2013CA088592

PATIENT
  Age: 76 Year
  Sex: Male

DRUGS (2)
  1. SANDOSTATIN LAR [Suspect]
     Indication: METASTATIC CARCINOMA OF THE BLADDER
     Dosage: 20 MG, QMO
     Route: 030
     Dates: start: 20130517, end: 20130909
  2. FRAGMIN [Concomitant]
     Dosage: UNK UKN, ONCE DAILY
     Route: 058

REACTIONS (8)
  - Death [Fatal]
  - Stoma site haemorrhage [Fatal]
  - Anal fistula [Unknown]
  - Haemoglobin decreased [Unknown]
  - Thrombophlebitis [Unknown]
  - Oedema peripheral [Unknown]
  - Pain in extremity [Unknown]
  - Chromaturia [Unknown]
